FAERS Safety Report 6282928-3 (Version None)
Quarter: 2009Q3

REPORT INFORMATION
  Report Type: 
  Country: None (occurrence: None)
  Receive Date: 20090722
  Receipt Date: 20090722
  Transmission Date: 20100115
  Serious: Yes (Other)
  Sender: FDA-Public Use
  Company Number: None

PATIENT
  Age: 20 Year
  Sex: Male
  Weight: 70.3075 kg

DRUGS (2)
  1. ACCUTANE [Suspect]
     Indication: ACNE
     Dosage: 40 MG 1/DAY PO  20 MG 1/DAY PO
     Route: 048
     Dates: start: 20020901, end: 20030201
  2. . [Concomitant]

REACTIONS (1)
  - COLITIS ULCERATIVE [None]
